FAERS Safety Report 4405133-1 (Version None)
Quarter: 2004Q3

REPORT INFORMATION
  Report Type: 
  Country: None (occurrence: None)
  Receive Date: 20040722
  Receipt Date: 20040722
  Transmission Date: 20050211
  Serious: Yes (Death)
  Sender: FDA-Public Use
  Company Number: None

PATIENT
  Age: 84 Year
  Sex: Female

DRUGS (4)
  1. ROXANOL 20 MG/ML [Suspect]
     Indication: PAIN
     Dosage: SINGLE DOSE OF 10 ML G-TUBE
  2. TYLENOL [Concomitant]
  3. DARVOCET [Concomitant]
  4. HYDROCODONE [Concomitant]

REACTIONS (1)
  - MEDICATION ERROR [None]
